FAERS Safety Report 4551195-0 (Version None)
Quarter: 2005Q1

REPORT INFORMATION
  Report Type: 
  Country: None (occurrence: None)
  Receive Date: 20050106
  Receipt Date: 20041222
  Transmission Date: 20050727
  Serious: Yes (Life-Threatening, Hospitalization, Other)
  Sender: FDA-Public Use
  Company Number: NL-2004-031236

PATIENT
  Age: 37 Year
  Sex: Female

DRUGS (1)
  1. MIRENA [Suspect]
     Indication: CONTRACEPTION
     Dosage: 20 UG, CONT, INTRA-UTERINE
     Route: 015
     Dates: start: 19990407, end: 20040914

REACTIONS (5)
  - BRADYCARDIA [None]
  - CARDIAC ARREST [None]
  - IUD MIGRATION [None]
  - POST PROCEDURAL COMPLICATION [None]
  - SYNCOPE VASOVAGAL [None]
